FAERS Safety Report 10233251 (Version 2)
Quarter: 2014Q2

REPORT INFORMATION
  Report Type: Spontaneous
  Country: TR (occurrence: TR)
  Receive Date: 20140612
  Receipt Date: 20140612
  Transmission Date: 20141212
  Serious: Yes (Hospitalization)
  Sender: FDA-Public Use
  Company Number: PHHY2013TR075391

PATIENT
  Age: 71 Year
  Sex: Female

DRUGS (6)
  1. METHOTREXATE [Suspect]
     Indication: RHEUMATOID ARTHRITIS
     Dosage: 7.5 MG, PER WEEK
  2. METHOTREXATE [Suspect]
     Dosage: 10 MG, PER WEEK
  3. DICLOFENAC [Concomitant]
     Dosage: 100 MG, PER DAY
  4. CLOPIDOGREL [Concomitant]
     Indication: CEREBRAL ISCHAEMIA
     Dosage: 75 MG, PER DAY
  5. FLUCONAZOLE [Concomitant]
     Indication: ORAL CANDIDIASIS
  6. PIPERACILLIN + TAZOBACTAM [Concomitant]
     Indication: URINARY TRACT INFECTION

REACTIONS (11)
  - Aphthous stomatitis [Unknown]
  - Dehydration [Unknown]
  - Dysphagia [Unknown]
  - Bone marrow failure [Unknown]
  - Pancytopenia [Recovered/Resolved]
  - Eosinophilia [Recovered/Resolved]
  - Diarrhoea [Unknown]
  - Asthenia [Unknown]
  - Stomatitis [Unknown]
  - Eosinophil count increased [Unknown]
  - Mouth ulceration [Unknown]
